FAERS Safety Report 18214770 (Version 2)
Quarter: 2021Q1

REPORT INFORMATION
  Report Type: Spontaneous
  Country: US (occurrence: US)
  Receive Date: 20200831
  Receipt Date: 20210131
  Transmission Date: 20210419
  Serious: Yes (Hospitalization, Other)
  Sender: FDA-Public Use
  Company Number: US-PURDUE-USA-2020-0163870

PATIENT
  Age: 51 Year
  Sex: Female

DRUGS (5)
  1. OXYCODONE [Suspect]
     Active Substance: OXYCODONE
     Indication: PRODUCT USED FOR UNKNOWN INDICATION
     Dosage: 60 MG, EVERY TWELVE HOURS
     Route: 058
  2. XANAX [Concomitant]
     Active Substance: ALPRAZOLAM
     Indication: ANXIETY
     Dosage: 1 MG, TWO TIMES A DAY
     Route: 048
  3. TYLENOL [Concomitant]
     Active Substance: ACETAMINOPHEN
     Indication: PAIN
     Dosage: 3900 MG, DAILY
     Route: 048
  4. COUMADIN [Concomitant]
     Active Substance: WARFARIN SODIUM
     Indication: ANTICOAGULANT THERAPY
     Dosage: 25 MG TABLET, 3 TABLETS BEDTIME
     Route: 048
     Dates: start: 20060923, end: 20060924
  5. OXYCONTIN [Suspect]
     Active Substance: OXYCODONE HYDROCHLORIDE
     Indication: PAIN
     Dosage: 40 MG, 2 PER DAY
     Route: 048
     Dates: start: 2001

REACTIONS (13)
  - Overweight [Unknown]
  - Drug withdrawal syndrome [Unknown]
  - Unevaluable event [Unknown]
  - Blindness [Unknown]
  - Vomiting [Unknown]
  - Amnesia [Unknown]
  - Headache [Unknown]
  - Drug dependence [Unknown]
  - Cardiac disorder [Unknown]
  - Loss of consciousness [Unknown]
  - Migraine [Unknown]
  - Overdose [Unknown]
  - Cerebrovascular accident [Unknown]

NARRATIVE: CASE EVENT DATE: 20060920
